FAERS Safety Report 8611344 (Version 2)
Quarter: 2013Q3

REPORT INFORMATION
  Report Type: Spontaneous
  Country: US (occurrence: US)
  Receive Date: 20120613
  Receipt Date: 20130909
  Transmission Date: 20140515
  Serious: Yes (Other)
  Sender: FDA-Public Use
  Company Number: US-BRISTOL-MYERS SQUIBB COMPANY-16655904

PATIENT
  Sex: Male

DRUGS (2)
  1. ABILIFY [Suspect]
  2. NAVANE [Suspect]

REACTIONS (8)
  - Diabetes mellitus [Unknown]
  - Anuria [Unknown]
  - Eye swelling [Unknown]
  - Cataract [Unknown]
  - Generalised erythema [Unknown]
  - Palpitations [Unknown]
  - Weight decreased [Unknown]
  - Sleep disorder [Unknown]
